FAERS Safety Report 4691236-3 (Version None)
Quarter: 2005Q2

REPORT INFORMATION
  Report Type: 
  Country: None (occurrence: None)
  Receive Date: 20050614
  Receipt Date: 20050531
  Transmission Date: 20051028
  Serious: Yes (Hospitalization, Other)
  Sender: FDA-Public Use
  Company Number: 2005081868

PATIENT
  Age: 84 Year
  Sex: Female

DRUGS (2)
  1. BEXTRA [Suspect]
     Indication: OSTEOARTHRITIS
     Dosage: ORAL
     Route: 048
  2. CELEBREX [Suspect]
     Indication: OSTEOARTHRITIS
     Dosage: 200 MG (200 MG, 1 IN 1 D), ORAL
     Route: 048
     Dates: start: 20020101

REACTIONS (3)
  - ABDOMINAL PAIN UPPER [None]
  - NAUSEA [None]
  - STOMACH DISCOMFORT [None]
